FAERS Safety Report 11750898 (Version 1)
Quarter: 2015Q4

REPORT INFORMATION
  Report Type: Spontaneous
  Country: US (occurrence: US)
  Receive Date: 20151118
  Receipt Date: 20151118
  Transmission Date: 20160304
  Serious: No
  Sender: FDA-Public Use
  Company Number: US-NOVOPROD-460379

PATIENT
  Age: 60 Year
  Sex: Male

DRUGS (2)
  1. VICTOZA [Concomitant]
     Active Substance: LIRAGLUTIDE
     Indication: PRODUCT USED FOR UNKNOWN INDICATION
     Dosage: UNK
     Route: 058
  2. NOVOLOG [Suspect]
     Active Substance: INSULIN ASPART
     Indication: PRODUCT USED FOR UNKNOWN INDICATION
     Dosage: 70 UNITS AT MEALTIME
     Route: 058

REACTIONS (3)
  - Glycosylated haemoglobin increased [Unknown]
  - Blood glucose increased [Unknown]
  - Back pain [Unknown]
